FAERS Safety Report 7376431-7 (Version None)
Quarter: 2011Q1

REPORT INFORMATION
  Report Type: 
  Country: None (occurrence: None)
  Receive Date: 20110325
  Receipt Date: 20110321
  Transmission Date: 20110831
  Serious: Yes (Other)
  Sender: FDA-Public Use
  Company Number: US-PFIZER INC-2011062186

PATIENT
  Age: 18 Year
  Sex: Female
  Weight: 63.492 kg

DRUGS (1)
  1. DRISTAN [Suspect]
     Dosage: UNK, 3X/DAY
     Route: 045
     Dates: start: 20110101, end: 20110301

REACTIONS (2)
  - INCORRECT DOSE ADMINISTERED [None]
  - CONVULSION [None]
